FAERS Safety Report 7692574 (Version 4)
Quarter: 2014Q2

REPORT INFORMATION
  Report Type: Spontaneous
  Country: US (occurrence: US)
  Receive Date: 20101206
  Receipt Date: 20140602
  Transmission Date: 20141212
  Serious: Yes (Hospitalization, Other)
  Sender: FDA-Public Use
  Company Number: US-BAYER-2010-001156

PATIENT
  Age: 36 Year
  Sex: Female
  Weight: 136.5 kg

DRUGS (6)
  1. YASMIN [Suspect]
     Indication: CONTRACEPTION
     Dosage: UNK
     Dates: start: 2003
  2. TRAMADOL [Concomitant]
     Indication: BACK PAIN
     Dosage: UNK
     Route: 048
     Dates: start: 2005
  3. NAPROXEN [Concomitant]
     Indication: INFLAMMATION
     Route: 048
  4. FLONASE [Concomitant]
     Indication: SINUSITIS
     Route: 055
  5. NORFLEX [Concomitant]
     Indication: PAIN
     Route: 048
  6. PROTONIX [Concomitant]
     Indication: GASTROOESOPHAGEAL REFLUX DISEASE
     Route: 048

REACTIONS (3)
  - Gallbladder injury [None]
  - Biliary dyskinesia [None]
  - Cholecystitis [None]
